FAERS Safety Report 6820047-5 (Version None)
Quarter: 2010Q3

REPORT INFORMATION
  Report Type: 
  Country: None (occurrence: None)
  Receive Date: 20100707
  Receipt Date: 20100629
  Transmission Date: 20110219
  Serious: Yes (Other)
  Sender: FDA-Public Use
  Company Number: A0867647A

PATIENT
  Sex: Female

DRUGS (9)
  1. LAMICTAL [Suspect]
     Indication: BIPOLAR DISORDER
     Dosage: 200MG PER DAY
     Route: 048
  2. LISINOPRIL [Concomitant]
  3. SIMVASTATIN [Concomitant]
  4. CLONAZEPAM [Concomitant]
  5. PROAIR HFA [Concomitant]
  6. SYNTHROID [Concomitant]
  7. CARDIZEM [Concomitant]
  8. SPIRIVA [Concomitant]
  9. SEROQUEL [Concomitant]

REACTIONS (1)
  - ANKLE FRACTURE [None]
